FAERS Safety Report 7336509-0 (Version None)
Quarter: 2011Q1

REPORT INFORMATION
  Report Type: 
  Country: None (occurrence: None)
  Receive Date: 20110307
  Receipt Date: 20110221
  Transmission Date: 20110831
  Serious: Yes (Hospitalization)
  Sender: FDA-Public Use
  Company Number: US-AMGEN-USASP2011009965

PATIENT
  Sex: Male

DRUGS (2)
  1. CALCIUM [Concomitant]
     Route: 048
  2. XGEVA [Suspect]
     Indication: METASTASES TO BONE
     Dates: start: 20110209

REACTIONS (1)
  - HYPOCALCAEMIA [None]
